FAERS Safety Report 4604872-7 (Version None)
Quarter: 2005Q2

REPORT INFORMATION
  Report Type: 
  Country: None (occurrence: None)
  Receive Date: 20050217
  Receipt Date: 20050112
  Transmission Date: 20051028
  Serious: No
  Sender: FDA-Public Use
  Company Number: S05-USA-00165-01

PATIENT
  Age: 88 Year
  Sex: Male

DRUGS (5)
  1. NAMENDA [Suspect]
     Indication: DEMENTIA ALZHEIMER'S TYPE
     Dosage: 5 MG QD PO
     Route: 048
     Dates: start: 20050101, end: 20050101
  2. NAMENDA [Suspect]
     Indication: DEMENTIA ALZHEIMER'S TYPE
     Dosage: 10 MG QD PO
     Route: 048
     Dates: start: 20050101
  3. OMEPRAZOLE [Concomitant]
  4. TERAZOSIN [Concomitant]
  5. EYE DROPS (NOS) [Concomitant]

REACTIONS (2)
  - FLATULENCE [None]
  - SALIVARY HYPERSECRETION [None]
